FAERS Safety Report 14855843 (Version 1)
Quarter: 2018Q2

REPORT INFORMATION
  Report Type: Spontaneous
  Country: US (occurrence: US)
  Receive Date: 20180507
  Receipt Date: 20180507
  Transmission Date: 20180711
  Serious: Yes (Disabling, Other)
  Sender: FDA-Public Use
  Company Number: US-REGENERON PHARMACEUTICALS, INC.-2018-22772

PATIENT

DRUGS (2)
  1. EYLEA [Suspect]
     Active Substance: AFLIBERCEPT
     Dosage: EVERY 4 WEEKS
     Route: 031
     Dates: start: 2017, end: 201802
  2. EYLEA [Suspect]
     Active Substance: AFLIBERCEPT
     Indication: RETINAL HAEMORRHAGE
     Dosage: MONTHLY, 3 INJECTIONS
     Route: 031
     Dates: start: 201610

REACTIONS (6)
  - Influenza [Unknown]
  - Blindness unilateral [Unknown]
  - Off label use [Unknown]
  - Eye disorder [Unknown]
  - Intentional dose omission [Unknown]
  - Vision blurred [Unknown]

NARRATIVE: CASE EVENT DATE: 20180416
